FAERS Safety Report 10924901 (Version 2)
Quarter: 2015Q2

REPORT INFORMATION
  Report Type: Spontaneous
  Country: US (occurrence: US)
  Receive Date: 20150318
  Receipt Date: 20150524
  Transmission Date: 20150821
  Serious: No
  Sender: FDA-Public Use
  Company Number: US-JNJFOC-20120703330

PATIENT
  Age: 78 Year
  Sex: Male
  Weight: 72.58 kg

DRUGS (2)
  1. NIZORAL [Suspect]
     Active Substance: KETOCONAZOLE
     Indication: SKIN EXFOLIATION
     Route: 061
     Dates: start: 2000
  2. NIZORAL [Suspect]
     Active Substance: KETOCONAZOLE
     Route: 061

REACTIONS (3)
  - Expired product administered [Recovered/Resolved]
  - Erythema [Not Recovered/Not Resolved]
  - Drug administered at inappropriate site [Recovered/Resolved]

NARRATIVE: CASE EVENT DATE: 20120705
